FAERS Safety Report 17279817 (Version 1)
Quarter: 2020Q1

REPORT INFORMATION
  Report Type: Spontaneous
  Country: US (occurrence: US)
  Receive Date: 20200116
  Receipt Date: 20200116
  Transmission Date: 20200409
  Serious: Yes (Other)
  Sender: FDA-Public Use
  Company Number: US-009507513-1812USA001610

PATIENT
  Sex: Male

DRUGS (3)
  1. ZOSTAVAX [Suspect]
     Active Substance: VARICELLA-ZOSTER VIRUS STRAIN OKA/MERCK LIVE ANTIGEN
     Indication: PROPHYLAXIS
     Dosage: 1 DOSAGE FORM
     Route: 058
     Dates: start: 20160815
  2. TAMSULOSIN HYDROCHLORIDE. [Concomitant]
     Active Substance: TAMSULOSIN HYDROCHLORIDE
     Indication: URINARY TRACT DISORDER
     Dosage: 0.4 MILLIGRAM
     Dates: start: 20040322
  3. STERILE DILUENT (WATER) [Suspect]
     Active Substance: WATER
     Dosage: UNK
     Route: 058
     Dates: start: 20160815

REACTIONS (22)
  - Herpes zoster [Recovering/Resolving]
  - Phobia [Unknown]
  - Post herpetic neuralgia [Unknown]
  - Dizziness [Unknown]
  - Asthenia [Unknown]
  - Anxiety [Unknown]
  - Vaccination failure [Unknown]
  - Dyspnoea [Unknown]
  - Insomnia [Unknown]
  - Chest pain [Unknown]
  - Abdominal discomfort [Unknown]
  - Pain [Unknown]
  - Depression [Unknown]
  - Fatigue [Unknown]
  - Pulmonary pain [Unknown]
  - Haemorrhage [Unknown]
  - Dry mouth [Unknown]
  - Constipation [Unknown]
  - Rash vesicular [Unknown]
  - Back pain [Unknown]
  - Contusion [Unknown]
  - Feeling cold [Unknown]

NARRATIVE: CASE EVENT DATE: 2016
